FAERS Safety Report 19504175 (Version 1)
Quarter: 2021Q3

REPORT INFORMATION
  Report Type: Spontaneous
  Country: NO (occurrence: NO)
  Receive Date: 20210707
  Receipt Date: 20210707
  Transmission Date: 20211014
  Serious: Yes (Death)
  Sender: FDA-Public Use
  Company Number: NO-EISAI MEDICAL RESEARCH-EC-2021-095598

PATIENT
  Age: 77 Year
  Sex: Male

DRUGS (10)
  1. BACTRIM [Concomitant]
     Active Substance: SULFAMETHOXAZOLE\TRIMETHOPRIM
     Indication: ANTIBIOTIC PROPHYLAXIS
     Dosage: 2 TABLETS ON SATURDAYS AND SUNDAYS (DOSAGE UNKNOWN)
  2. LEVAXIN [Concomitant]
     Active Substance: LEVOTHYROXINE SODIUM
     Indication: THYROIDECTOMY
     Dosage: 100 MICROGRAMS 2 DAYS PER WEEK AND 150 MICROGRAMS 5 DAYS PER WEEK
  3. ZOPICLONE [Concomitant]
     Active Substance: ZOPICLONE
     Indication: SLEEP DISORDER
  4. SOMAC [Concomitant]
     Active Substance: PANTOPRAZOLE SODIUM
     Indication: PROPHYLAXIS AGAINST GASTROINTESTINAL ULCER
  5. LENVIMA [Suspect]
     Active Substance: LENVATINIB
     Indication: THYROID CANCER
     Route: 048
     Dates: start: 20200911, end: 20210617
  6. BRONKYL [Concomitant]
     Indication: SECRETION DISCHARGE
  7. CALCIGRAN FORTE [Concomitant]
     Active Substance: CALCIUM CARBONATE\CHOLECALCIFEROL
     Indication: POST PROCEDURAL HYPOPARATHYROIDISM
  8. PREDNISOLON [Concomitant]
     Active Substance: PREDNISOLONE
     Indication: PHARYNGEAL OEDEMA
  9. NORVASC [Concomitant]
     Active Substance: AMLODIPINE BESYLATE
     Indication: HYPERTENSION
  10. PARACET [Concomitant]
     Indication: PAIN
     Dosage: 1 G 1?4 TIMES DAILY AS REQUIRED

REACTIONS (1)
  - Respiratory tract haemorrhage [Fatal]

NARRATIVE: CASE EVENT DATE: 20210617
